FAERS Safety Report 4996460-8 (Version None)
Quarter: 2006Q2

REPORT INFORMATION
  Report Type: 
  Country: None (occurrence: None)
  Receive Date: 20060509
  Receipt Date: 20060410
  Transmission Date: 20061013
  Serious: Yes (Death)
  Sender: FDA-Public Use
  Company Number: PHBS2006JP05249

PATIENT
  Age: 52 Year
  Sex: Female
  Weight: 38 kg

DRUGS (11)
  1. NEORAL [Suspect]
     Indication: NEPHROTIC SYNDROME
     Dosage: 50 MG, BID
     Route: 048
     Dates: start: 20060403, end: 20060409
  2. PREDONINE [Suspect]
     Indication: NEPHROTIC SYNDROME
     Dates: start: 20050101
  3. PREDONINE [Suspect]
     Dosage: 40 MG/D
     Route: 048
     Dates: start: 20060214, end: 20060322
  4. PREDONINE [Suspect]
     Dosage: 35 MG/D
     Route: 048
     Dates: start: 20060323, end: 20060403
  5. PREDONINE [Suspect]
     Dosage: 30 MG/D
     Route: 048
     Dates: start: 20060404, end: 20060409
  6. PREDONINE [Suspect]
     Dosage: 40 MG/D
     Route: 048
     Dates: start: 20050601, end: 20060409
  7. WARFARIN SODIUM [Concomitant]
     Dosage: 1 MG/D
     Dates: start: 20060214, end: 20060409
  8. COMELIAN [Concomitant]
     Dosage: 300 MG/D
     Dates: start: 20060214, end: 20060409
  9. OMEPRAZON [Concomitant]
     Dosage: 10 MG/D
     Dates: start: 20060214, end: 20060409
  10. SANDIMMUNE [Suspect]
     Indication: NEPHROTIC SYNDROME
     Dosage: 50 MG, BID
     Route: 048
     Dates: start: 20060315, end: 20060402
  11. ALFAROL [Concomitant]
     Dosage: 0.5 MG/D
     Dates: start: 20060214, end: 20060409

REACTIONS (2)
  - COMPLETED SUICIDE [None]
  - MENTAL DISORDER [None]
